FAERS Safety Report 4489179-3 (Version None)
Quarter: 2004Q4

REPORT INFORMATION
  Report Type: 
  Country: None (occurrence: None)
  Receive Date: 20041029
  Receipt Date: 20041019
  Transmission Date: 20050328
  Serious: Yes (Hospitalization)
  Sender: FDA-Public Use
  Company Number: JP-JNJFOC-20041005659

PATIENT
  Age: 17 Year
  Sex: Female

DRUGS (4)
  1. OFLOCET [Suspect]
     Route: 049
     Dates: start: 20040903, end: 20040910
  2. OFLOCET [Suspect]
     Route: 049
     Dates: start: 20040903, end: 20040910
  3. TOPALGIC [Suspect]
     Route: 049
  4. TOPALGIC [Suspect]
     Route: 049

REACTIONS (4)
  - ALANINE AMINOTRANSFERASE INCREASED [None]
  - ASPARTATE AMINOTRANSFERASE INCREASED [None]
  - GAMMA-GLUTAMYLTRANSFERASE INCREASED [None]
  - HEPATOCELLULAR DAMAGE [None]
